FAERS Safety Report 23928479 (Version 1)
Quarter: 2024Q2

REPORT INFORMATION
  Report Type: Spontaneous
  Country: US (occurrence: US)
  Receive Date: 20240531
  Receipt Date: 20240531
  Transmission Date: 20240716
  Serious: No
  Sender: FDA-Public Use
  Company Number: US-RADIUS HEALTH INC.-2023US004946

PATIENT
  Age: 80 Year
  Sex: Female

DRUGS (1)
  1. TYMLOS [Suspect]
     Active Substance: ABALOPARATIDE
     Indication: Senile osteoporosis
     Dosage: 80 MICROGRAM, QD
     Route: 058

REACTIONS (8)
  - Dizziness postural [Unknown]
  - Feeling hot [Unknown]
  - Vulvovaginal discomfort [Unknown]
  - Vulvovaginal burning sensation [Unknown]
  - Headache [Unknown]
  - Heart rate increased [Unknown]
  - Injection site bruising [Unknown]
  - Dyspnoea [Unknown]

NARRATIVE: CASE EVENT DATE: 20230927
